FAERS Safety Report 5269560-5 (Version None)
Quarter: 2007Q1

REPORT INFORMATION
  Report Type: 
  Country: None (occurrence: None)
  Receive Date: 20070320
  Receipt Date: 20070309
  Transmission Date: 20070707
  Serious: Yes (Disabling)
  Sender: FDA-Public Use
  Company Number: GBWYE498602FEB07

PATIENT
  Sex: Male
  Weight: 78.5 kg

DRUGS (1)
  1. ENBREL [Suspect]
     Indication: ANKYLOSING SPONDYLITIS
     Route: 058
     Dates: start: 20051206

REACTIONS (2)
  - CONDITION AGGRAVATED [None]
  - UVEITIS [None]
